FAERS Safety Report 18674186 (Version 1)
Quarter: 2020Q4

REPORT INFORMATION
  Report Type: Spontaneous
  Country: ID (occurrence: ID)
  Receive Date: 20201229
  Receipt Date: 20201229
  Transmission Date: 20210114
  Serious: Yes (Hospitalization, Other)
  Sender: FDA-Public Use
  Company Number: ID-LUPIN PHARMACEUTICALS INC.-2020-11033

PATIENT
  Age: 63 Year
  Sex: Male

DRUGS (3)
  1. TRIAMCINOLONE [Suspect]
     Active Substance: TRIAMCINOLONE
     Indication: LUMBAR SPINAL STENOSIS
     Dosage: 40 MILLIGRAM (INJECTION)
     Route: 008
  2. BUPIVACAINE. [Suspect]
     Active Substance: BUPIVACAINE
     Indication: LUMBAR SPINAL STENOSIS
     Dosage: 8 MILLILITER
     Route: 008
  3. SODIUM CHLORIDE. [Suspect]
     Active Substance: SODIUM CHLORIDE
     Indication: LUMBAR SPINAL STENOSIS
     Dosage: 10 MILLILITER
     Route: 008

REACTIONS (2)
  - Paralysis [Recovered/Resolved]
  - Cauda equina syndrome [Recovered/Resolved]
